FAERS Safety Report 20712345 (Version 1)
Quarter: 2022Q2

REPORT INFORMATION
  Report Type: Report from Study
  Country: BR (occurrence: BR)
  Receive Date: 20220415
  Receipt Date: 20220415
  Transmission Date: 20220720
  Serious: Yes (Hospitalization)
  Sender: FDA-Public Use
  Company Number: BR-ABBVIE-22K-020-4359024-00

PATIENT
  Age: 78 Year
  Sex: Female
  Weight: 69 kg

DRUGS (6)
  1. RINVOQ [Suspect]
     Active Substance: UPADACITINIB
     Indication: Rheumatoid arthritis
     Route: 048
     Dates: start: 202109, end: 202202
  2. RINVOQ [Suspect]
     Active Substance: UPADACITINIB
     Route: 048
     Dates: start: 2022, end: 202203
  3. RINVOQ [Suspect]
     Active Substance: UPADACITINIB
     Route: 048
     Dates: start: 2022, end: 202204
  4. COVID-19 VACCINE [Concomitant]
     Indication: COVID-19 immunisation
     Dosage: FIRST DOSE
     Route: 030
  5. COVID-19 VACCINE [Concomitant]
     Dosage: SECOND DOSE
     Route: 030
  6. COVID-19 VACCINE [Concomitant]
     Dosage: THIRD DOSE
     Route: 030

REACTIONS (5)
  - COVID-19 [Recovered/Resolved]
  - COVID-19 [Recovered/Resolved]
  - Malaise [Unknown]
  - Drug ineffective [Unknown]
  - Unevaluable event [Unknown]

NARRATIVE: CASE EVENT DATE: 20220101
